FAERS Safety Report 14377740 (Version 1)
Quarter: 2018Q1

REPORT INFORMATION
  Report Type: Spontaneous
  Country: US (occurrence: US)
  Receive Date: 20180111
  Receipt Date: 20180111
  Transmission Date: 20180509
  Serious: Yes (Hospitalization)
  Sender: FDA-Public Use
  Company Number: US-ALKERMES INC.-ALK-2018-000073

PATIENT
  Sex: Female

DRUGS (1)
  1. VIVITROL [Suspect]
     Active Substance: NALTREXONE
     Indication: ALCOHOLISM
     Dosage: 380 MG, QMO
     Route: 030
     Dates: start: 201710, end: 201710

REACTIONS (5)
  - Gastric infection [Unknown]
  - Depressed mood [Not Recovered/Not Resolved]
  - Sinusitis [Unknown]
  - Drug ineffective [Unknown]
  - Alcoholism [Unknown]

NARRATIVE: CASE EVENT DATE: 2017
